FAERS Safety Report 22185448 (Version 1)
Quarter: 2023Q2

REPORT INFORMATION
  Report Type: Spontaneous
  Country: US (occurrence: US)
  Receive Date: 20230407
  Receipt Date: 20230407
  Transmission Date: 20230721
  Serious: No
  Sender: FDA-Public Use
  Company Number: US-SA-SAC20230405000596

PATIENT
  Age: 48 Year
  Sex: Male

DRUGS (1)
  1. AUBAGIO [Suspect]
     Active Substance: TERIFLUNOMIDE
     Indication: Multiple sclerosis
     Dosage: 14 MG, QD
     Route: 048
     Dates: start: 20210722

REACTIONS (6)
  - Musculoskeletal stiffness [Unknown]
  - Muscle spasticity [Unknown]
  - Fatigue [Unknown]
  - Cognitive disorder [Unknown]
  - Mobility decreased [Unknown]
  - Fall [Unknown]
